FAERS Safety Report 6109613-2 (Version None)
Quarter: 2009Q1

REPORT INFORMATION
  Report Type: 
  Country: None (occurrence: None)
  Receive Date: 20090310
  Receipt Date: 20090302
  Transmission Date: 20090719
  Serious: Yes (Other)
  Sender: FDA-Public Use
  Company Number: PHEH2009US02211

PATIENT
  Sex: Female
  Weight: 51 kg

DRUGS (1)
  1. ZOMETA [Suspect]
     Indication: OSTEOPOROSIS
     Dosage: 4 MG X ONE DOSE
     Route: 042
     Dates: start: 20081229

REACTIONS (8)
  - BLISTER [None]
  - ECZEMA [None]
  - ERYTHEMA [None]
  - NIKOLSKY'S SIGN [None]
  - RASH GENERALISED [None]
  - RASH PAPULAR [None]
  - RASH PUSTULAR [None]
  - SKIN EXFOLIATION [None]
